FAERS Safety Report 16890628 (Version 7)
Quarter: 2023Q4

REPORT INFORMATION
  Report Type: Spontaneous
  Country: US (occurrence: US)
  Receive Date: 20191007
  Receipt Date: 20231222
  Transmission Date: 20240109
  Serious: No
  Sender: FDA-Public Use
  Company Number: US-PFIZER INC-2019426576

PATIENT
  Age: 62 Year
  Sex: Female

DRUGS (1)
  1. XELJANZ XR [Suspect]
     Active Substance: TOFACITINIB CITRATE
     Indication: Arthritis
     Dosage: 1 TABLET, EVERY DAY
     Route: 048

REACTIONS (10)
  - Drug effective for unapproved indication [Unknown]
  - Off label use [Unknown]
  - Hypoacusis [Unknown]
  - Condition aggravated [Unknown]
  - Nasopharyngitis [Recovered/Resolved]
  - Sinusitis [Unknown]
  - Headache [Unknown]
  - Tenderness [Unknown]
  - Cough [Unknown]
  - Nasal congestion [Unknown]
